FAERS Safety Report 10040231 (Version 4)
Quarter: 2014Q2

REPORT INFORMATION
  Report Type: Report from Study
  Country: CH (occurrence: CH)
  Receive Date: 20140327
  Receipt Date: 20140417
  Transmission Date: 20141212
  Serious: Yes (Hospitalization, Other)
  Sender: FDA-Public Use
  Company Number: CH-AMGEN-CHECT2014019706

PATIENT
  Age: 41 Year
  Sex: Female
  Weight: 59 kg

DRUGS (5)
  1. PANITUMUMAB [Suspect]
     Indication: ANAL CANCER
     Dosage: 375 MG, Q2WK
     Route: 042
     Dates: start: 20140217, end: 20140217
  2. MITOMYCIN [Concomitant]
     Indication: ANAL CANCER
     Dosage: 169 MG, Q4WK
     Route: 042
     Dates: start: 20140217, end: 20140317
  3. CAPECITABINE [Concomitant]
     Indication: ANAL CANCER
     Dosage: 1150 MG, BID
     Route: 048
     Dates: start: 20140217, end: 20140316
  4. DOXYCYCLINE [Concomitant]
     Indication: DERMATITIS
     Dosage: 100 MG, QD
     Route: 048
     Dates: start: 20140210, end: 20140212
  5. IMODIUM [Concomitant]
     Indication: DIARRHOEA
     Dosage: UNK UNK, TID
     Route: 048

REACTIONS (2)
  - Febrile neutropenia [Recovered/Resolved]
  - Diarrhoea [Recovered/Resolved]
